FAERS Safety Report 5490761-5 (Version None)
Quarter: 2007Q4

REPORT INFORMATION
  Report Type: 
  Country: None (occurrence: None)
  Receive Date: 20071019
  Receipt Date: 20071016
  Transmission Date: 20080405
  Serious: Yes (Other)
  Sender: FDA-Public Use
  Company Number: US-ASTRAZENECA-2007UW23959

PATIENT
  Age: 54 Year
  Sex: Female
  Weight: 106.1 kg

DRUGS (8)
  1. TOPROL-XL [Suspect]
     Indication: TACHYCARDIA
     Dosage: INCREASED FROM 100 MG TO 200 MG ON 03-OCT-2007
     Dates: start: 20061001
  2. LANTUS [Concomitant]
  3. PREDNISONE [Concomitant]
  4. MOBIC [Concomitant]
  5. EFFEXOR [Concomitant]
  6. MAGNESIUM SULFATE [Concomitant]
  7. OXYCONTIN [Concomitant]
  8. HYDROCODONE [Concomitant]

REACTIONS (2)
  - BLOOD GLUCOSE INCREASED [None]
  - TACHYCARDIA [None]
